FAERS Safety Report 9104209 (Version 2)
Quarter: 2013Q1

REPORT INFORMATION
  Report Type: Report from Study
  Country: PL (occurrence: PL)
  Receive Date: 20130219
  Receipt Date: 20130321
  Transmission Date: 20140127
  Serious: Yes (Life-Threatening, Hospitalization)
  Sender: FDA-Public Use
  Company Number: PHHY2013PL015582

PATIENT
  Age: 56 Year
  Sex: Male
  Weight: 79 kg

DRUGS (7)
  1. AMN107 [Suspect]
     Indication: CHRONIC MYELOID LEUKAEMIA
     Dosage: 800 MG, QD
     Route: 048
     Dates: start: 20120427
  2. PLAVIX [Concomitant]
  3. ACARD [Concomitant]
  4. BETALOC ZOK [Concomitant]
  5. TRITACE [Concomitant]
     Dosage: 2.5 MG, UNK
  6. SORTIS [Concomitant]
     Dosage: 40 MG, UNK
  7. SPIRONOL [Concomitant]
     Dosage: 25 MG, UNK

REACTIONS (2)
  - Acute myocardial infarction [Recovering/Resolving]
  - Angina pectoris [Recovering/Resolving]
